FAERS Safety Report 17542508 (Version 3)
Quarter: 2020Q2

REPORT INFORMATION
  Report Type: Report from Study
  Country: None (occurrence: CA)
  Receive Date: 20200314
  Receipt Date: 20200407
  Transmission Date: 20200713
  Serious: Yes (Hospitalization, Other)
  Sender: FDA-Public Use
  Company Number: CA-ABBVIE-20K-028-3316257-00

PATIENT
  Age: 61 Year
  Sex: Female

DRUGS (3)
  1. DUODOPA [Suspect]
     Active Substance: CARBIDOPA\LEVODOPA
     Indication: PARKINSON^S DISEASE
     Route: 050
     Dates: start: 20181119
  2. DUODOPA [Suspect]
     Active Substance: CARBIDOPA\LEVODOPA
     Dosage: DUODOPA-LEVODOPA20MG/ML,CARBIDOPAMONOHYDRATE5MG/ML
     Route: 050
     Dates: start: 20200316
  3. DUODOPA [Suspect]
     Active Substance: CARBIDOPA\LEVODOPA
     Dosage: DUODOPA-LEVODOPA20MG/ML,CARBIDOPAMONOHYDRATE5MG/ML
     Route: 050
     Dates: start: 20190319, end: 20200308

REACTIONS (11)
  - Panic disorder [Unknown]
  - Carpal tunnel syndrome [Unknown]
  - Medical device site infection [Unknown]
  - Constipation [Not Recovered/Not Resolved]
  - Device breakage [Unknown]
  - Device leakage [Unknown]
  - Anxiety [Not Recovered/Not Resolved]
  - Abdominal pain [Unknown]
  - Device occlusion [Unknown]
  - Intestinal perforation [Not Recovered/Not Resolved]
  - Medical device site pain [Unknown]

NARRATIVE: CASE EVENT DATE: 201903
